FAERS Safety Report 8104007-2 (Version None)
Quarter: 2012Q1

REPORT INFORMATION
  Report Type: 
  Country: None (occurrence: None)
  Receive Date: 20120201
  Receipt Date: 20120129
  Transmission Date: 20120608
  Serious: No
  Sender: FDA-Public Use
  Company Number: US-BAYER-2012-010026

PATIENT

DRUGS (3)
  1. COLD MEDICINE [Concomitant]
  2. ALEVE (CAPLET) [Suspect]
     Indication: NASOPHARYNGITIS
  3. THROAT PREPARATIONS [Concomitant]

REACTIONS (4)
  - OROPHARYNGEAL PAIN [None]
  - MALAISE [None]
  - SPEECH DISORDER [None]
  - DYSPHONIA [None]
